FAERS Safety Report 8426731-4 (Version None)
Quarter: 2012Q2

REPORT INFORMATION
  Report Type: 
  Country: None (occurrence: None)
  Receive Date: 20120323
  Receipt Date: 20110426
  Transmission Date: 20120825
  Serious: Yes (Other)
  Sender: FDA-Public Use
  Company Number: 163-21880-11043616

PATIENT
  Age: 69 Year
  Sex: Male
  Weight: 72.5 kg

DRUGS (13)
  1. CIALIS [Concomitant]
  2. TRAZODONE HCL [Concomitant]
  3. OXYCONTIN [Concomitant]
  4. MULTIPLE VITAMINS (MULTIPLE VITAMINS) [Concomitant]
  5. FLOMAX [Concomitant]
  6. SUCRALFATE [Concomitant]
  7. LANSOPRAZOLE [Concomitant]
  8. PREVACID [Concomitant]
  9. ASPIRIN [Concomitant]
  10. PROCHLORPERAZINE MALEATE [Concomitant]
  11. REVLIMID [Suspect]
     Indication: MULTIPLE MYELOMA
     Dosage: 25 MG, DAILY FOR 3 WEEKS, PO
     Route: 048
     Dates: start: 20100301, end: 20110209
  12. DEXAMETHASONE [Concomitant]
  13. IMITREX [Concomitant]

REACTIONS (1)
  - PANCYTOPENIA [None]
